FAERS Safety Report 6235957-X (Version None)
Quarter: 2009Q2

REPORT INFORMATION
  Report Type: 
  Country: None (occurrence: None)
  Receive Date: 20090619
  Receipt Date: 20090616
  Transmission Date: 20091009
  Serious: Yes (Death, Other)
  Sender: FDA-Public Use
  Company Number: PHHY2009BR23934

PATIENT
  Sex: Female

DRUGS (7)
  1. DIOVAN [Suspect]
     Dosage: UNK
     Dates: start: 20090301
  2. CARVEDILOL [Concomitant]
     Indication: CARDIAC DISORDER
     Dosage: 1 TABLET A DAY
     Route: 048
     Dates: start: 20090301
  3. PAMELOR [Concomitant]
     Indication: ANTIDEPRESSANT THERAPY
     Dosage: 1 TABLET A DAY
     Route: 048
     Dates: start: 20030101
  4. CLONAZEPAM [Concomitant]
     Indication: ANTIDEPRESSANT THERAPY
     Dosage: 1/2 TABLET AT NIGHT
     Route: 048
     Dates: start: 20030101
  5. DIABINESE [Concomitant]
     Indication: DIABETES MELLITUS
     Dosage: 1 TABLET A DAY
     Route: 048
  6. DIURETICS [Concomitant]
  7. DRUG THERAPY NOS [Concomitant]
     Indication: HYPERTENSION

REACTIONS (1)
  - CARDIAC DISORDER [None]
